FAERS Safety Report 13207826 (Version 1)
Quarter: 2017Q1

REPORT INFORMATION
  Report Type: Spontaneous
  Country: JP (occurrence: JP)
  Receive Date: 20170209
  Receipt Date: 20170209
  Transmission Date: 20170428
  Serious: Yes (Hospitalization, Other)
  Sender: FDA-Public Use
  Company Number: JP-INDIVIOR-INDV-083814-2015

PATIENT
  Age: 24 Year
  Sex: Male

DRUGS (3)
  1. LEPETAN [Suspect]
     Active Substance: BUPRENORPHINE HYDROCHLORIDE
     Dosage: UNK
     Route: 030
     Dates: start: 2014
  2. LEPETAN [Suspect]
     Active Substance: BUPRENORPHINE HYDROCHLORIDE
     Indication: ABDOMINAL PAIN
     Dosage: 0.3 MG, TID
     Route: 030
  3. LEPETAN [Suspect]
     Active Substance: BUPRENORPHINE HYDROCHLORIDE
     Dosage: UNK
     Route: 030
     Dates: start: 2015

REACTIONS (11)
  - Off label use [Unknown]
  - Condition aggravated [Recovered/Resolved]
  - Superior mesenteric artery syndrome [Unknown]
  - Drug dependence [Unknown]
  - Abdominal pain upper [Recovered/Resolved]
  - Somatic symptom disorder [Unknown]
  - Cholelithiasis [Unknown]
  - Feeding disorder [Unknown]
  - Weight decreased [Unknown]
  - Sepsis [Unknown]
  - Vomiting [Unknown]

NARRATIVE: CASE EVENT DATE: 2014
